FAERS Safety Report 25519185 (Version 2)
Quarter: 2025Q3

REPORT INFORMATION
  Report Type: Spontaneous
  Country: EU (occurrence: EU)
  Receive Date: 20250704
  Receipt Date: 20250717
  Transmission Date: 20251020
  Serious: Yes (Hospitalization)
  Sender: BAUSCH AND LOMB
  Company Number: None

PATIENT
  Age: 7 Month
  Sex: Male

DRUGS (5)
  1. ACYCLOVIR [Suspect]
     Active Substance: ACYCLOVIR
     Indication: Haemorrhagic varicella syndrome
     Route: 065
  2. ACYCLOVIR [Suspect]
     Active Substance: ACYCLOVIR
     Indication: Rash
  3. ACYCLOVIR [Suspect]
     Active Substance: ACYCLOVIR
     Indication: Vomiting
  4. ACYCLOVIR [Suspect]
     Active Substance: ACYCLOVIR
     Indication: Decreased appetite
  5. ACYCLOVIR [Suspect]
     Active Substance: ACYCLOVIR
     Indication: Cough

REACTIONS (1)
  - Drug hypersensitivity [Recovered/Resolved]
